FAERS Safety Report 10233324 (Version 1)
Quarter: 2014Q2

REPORT INFORMATION
  Report Type: Spontaneous
  Country: ES (occurrence: ES)
  Receive Date: 20140612
  Receipt Date: 20140612
  Transmission Date: 20141212
  Serious: Yes (Hospitalization)
  Sender: FDA-Public Use
  Company Number: ES-MYLANLABS-2014S1013254

PATIENT
  Age: 78 Year
  Sex: Male

DRUGS (5)
  1. SALBUTAMOL [Suspect]
     Indication: NASOPHARYNGITIS
     Dosage: 5MG IN 2ML OF PHYSIOLOGICAL SALINE SOLUTION
     Route: 050
  2. SALBUTAMOL [Suspect]
     Indication: OFF LABEL USE
     Dosage: 5MG IN 2ML OF PHYSIOLOGICAL SALINE SOLUTION
     Route: 050
  3. TIOTROPIUM BROMIDE [Concomitant]
     Route: 065
  4. BUDESONIDE [Concomitant]
     Route: 065
  5. SALMETEROL [Concomitant]
     Route: 065

REACTIONS (1)
  - Acute coronary syndrome [Recovered/Resolved]
